FAERS Safety Report 7338760-2 (Version None)
Quarter: 2011Q1

REPORT INFORMATION
  Report Type: 
  Country: None (occurrence: None)
  Receive Date: 20110308
  Receipt Date: 20110223
  Transmission Date: 20110831
  Serious: Yes (Other)
  Sender: FDA-Public Use
  Company Number: PHHY2011NO14977

PATIENT

DRUGS (1)
  1. GLEEVEC [Suspect]
     Dosage: 400 MG, UNK

REACTIONS (2)
  - NEOPLASM MALIGNANT [None]
  - LYMPHOMA [None]
